FAERS Safety Report 11455961 (Version 1)
Quarter: 2015Q3

REPORT INFORMATION
  Report Type: Spontaneous
  Country: AU (occurrence: AU)
  Receive Date: 20150903
  Receipt Date: 20150903
  Transmission Date: 20151125
  Serious: Yes (Life-Threatening, Hospitalization, Other)
  Sender: FDA-Public Use
  Company Number: AU-APOTEX-2015AP012530

PATIENT
  Age: 44 Year
  Sex: Male

DRUGS (5)
  1. METFORMIN [Suspect]
     Active Substance: METFORMIN HYDROCHLORIDE
     Dosage: 35 G, SINGLE
  2. GLICLAZIDE [Suspect]
     Active Substance: GLICLAZIDE
     Dosage: 2.1 G, SINGLE
     Route: 065
  3. GLICLAZIDE [Suspect]
     Active Substance: GLICLAZIDE
     Indication: TYPE 2 DIABETES MELLITUS
     Dosage: 60 MG, QD
     Route: 065
  4. EXENATIDE [Concomitant]
     Active Substance: EXENATIDE
     Indication: TYPE 2 DIABETES MELLITUS
     Dosage: 10 ?G, BID
     Route: 065
  5. METFORMIN [Suspect]
     Active Substance: METFORMIN HYDROCHLORIDE
     Indication: TYPE 2 DIABETES MELLITUS
     Dosage: 1 G, BID
     Route: 065

REACTIONS (11)
  - Intentional overdose [Recovered/Resolved]
  - Encephalopathy [Recovered/Resolved]
  - Metabolic acidosis [Recovered/Resolved]
  - Acute kidney injury [Recovered/Resolved]
  - Distributive shock [Recovered/Resolved]
  - Vasoplegia syndrome [Recovered/Resolved]
  - Pulmonary hypertension [Recovered/Resolved]
  - Tachyarrhythmia [Recovered/Resolved]
  - Lactic acidosis [Recovered/Resolved]
  - Acute lung injury [Recovered/Resolved]
  - Respiratory failure [Recovered/Resolved]
